FAERS Safety Report 16795997 (Version 1)
Quarter: 2019Q3

REPORT INFORMATION
  Report Type: Spontaneous
  Country: CH (occurrence: CH)
  Receive Date: 20190911
  Receipt Date: 20190911
  Transmission Date: 20191005
  Serious: Yes (Death)
  Sender: FDA-Public Use
  Company Number: CH-MYLANLABS-2019M1084280

PATIENT
  Age: 80 Year
  Sex: Male

DRUGS (7)
  1. TRANEXAMIC ACID. [Suspect]
     Active Substance: TRANEXAMIC ACID
     Indication: HAEMOSTASIS
  2. TRANEXAMIC ACID. [Suspect]
     Active Substance: TRANEXAMIC ACID
     Indication: PERICARDIAL HAEMORRHAGE
     Dosage: UNK
  3. STREPTOKINASE [Suspect]
     Active Substance: STREPTOKINASE
     Indication: ACUTE MYOCARDIAL INFARCTION
  4. APROTININ [Suspect]
     Active Substance: APROTININ
     Indication: PERICARDIAL HAEMORRHAGE
     Dosage: UNK
  5. STREPTOKINASE [Suspect]
     Active Substance: STREPTOKINASE
     Indication: THROMBOLYSIS
     Dosage: UNK
  6. NITROGLYCERIN. [Concomitant]
     Active Substance: NITROGLYCERIN
  7. APROTININ [Suspect]
     Active Substance: APROTININ
     Indication: HAEMOSTASIS

REACTIONS (1)
  - Drug ineffective [Fatal]
